FAERS Safety Report 21757719 (Version 1)
Quarter: 2022Q4

REPORT INFORMATION
  Report Type: Spontaneous
  Country: US (occurrence: None)
  Receive Date: 20221221
  Receipt Date: 20221221
  Transmission Date: 20230113
  Serious: Yes (Death, Other)
  Sender: FDA-Public Use
  Company Number: US-ROCHE-2871102

PATIENT
  Age: 79 Year
  Sex: Female

DRUGS (1)
  1. ALTEPLASE [Suspect]
     Active Substance: ALTEPLASE
     Indication: Cerebrovascular accident
     Route: 065

REACTIONS (2)
  - Haemorrhage intracranial [Fatal]
  - Overdose [Unknown]

NARRATIVE: CASE EVENT DATE: 20210601
